FAERS Safety Report 23912826 (Version 1)
Quarter: 2024Q2

REPORT INFORMATION
  Report Type: Report from Study
  Country: GR (occurrence: GR)
  Receive Date: 20240529
  Receipt Date: 20240529
  Transmission Date: 20240716
  Serious: Yes (Hospitalization)
  Sender: FDA-Public Use
  Company Number: GR-TAKEDA-2024TUS051647

PATIENT
  Age: 56 Year
  Sex: Male

DRUGS (3)
  1. PARATHYROID HORMONE [Suspect]
     Active Substance: PARATHYROID HORMONE
     Indication: Autoimmune hypoparathyroidism
     Dosage: 100 MILLIGRAM, QD
     Route: 050
  2. PARATHYROID HORMONE [Suspect]
     Active Substance: PARATHYROID HORMONE
     Indication: Autoimmune hypoparathyroidism
     Dosage: 100 MILLIGRAM, QD
     Route: 050
  3. PARATHYROID HORMONE [Suspect]
     Active Substance: PARATHYROID HORMONE
     Indication: Autoimmune hypoparathyroidism
     Dosage: 100 MILLIGRAM, QD
     Route: 050

REACTIONS (3)
  - Calcium deficiency [Recovering/Resolving]
  - Hypoaesthesia [Recovering/Resolving]
  - Expired device used [Recovering/Resolving]
